FAERS Safety Report 5237456-0 (Version None)
Quarter: 2007Q1

REPORT INFORMATION
  Report Type: 
  Country: None (occurrence: None)
  Receive Date: 20070213
  Receipt Date: 20070209
  Transmission Date: 20070707
  Serious: Yes (Life-Threatening, Hospitalization)
  Sender: FDA-Public Use
  Company Number: FR-BOEHRINGER INGELHEIM PHARMACEUTICALS, INC.-2007-FF-00216FF

PATIENT
  Sex: Male
  Weight: 4.2 kg

DRUGS (4)
  1. CATAPRES [Suspect]
     Route: 064
     Dates: start: 20061108, end: 20061108
  2. SUFENTA [Suspect]
     Route: 064
     Dates: start: 20061108
  3. SUFENTANIL CITRATE [Suspect]
     Route: 064
     Dates: start: 20061108
  4. MARCAINE [Concomitant]
     Route: 064
     Dates: start: 20061108, end: 20061108

REACTIONS (6)
  - APGAR SCORE LOW [None]
  - FOETAL DISTRESS SYNDROME [None]
  - HYPOTHERMIA [None]
  - HYPOTONIA [None]
  - RECTAL HAEMORRHAGE [None]
  - RESPIRATORY DEPRESSION [None]
